FAERS Safety Report 7351920-X (Version None)
Quarter: 2011Q1

REPORT INFORMATION
  Report Type: 
  Country: None (occurrence: None)
  Receive Date: 20110310
  Receipt Date: 20110310
  Transmission Date: 20110831
  Serious: Yes (Other)
  Sender: FDA-Public Use
  Company Number: None

PATIENT
  Sex: Female
  Weight: 9.9791 kg

DRUGS (3)
  1. DOXEPIN [Suspect]
     Indication: ECZEMA
     Dosage: 10 OR 15MG ONCE NIGHTLY ORAL LIQUID
     Route: 048
     Dates: start: 20100207, end: 20100322
  2. DOXEPIN [Suspect]
     Indication: PRURITUS
     Dosage: 10 OR 15MG ONCE NIGHTLY ORAL LIQUID
     Route: 048
     Dates: start: 20100207, end: 20100322
  3. CETIRIZINE [Concomitant]

REACTIONS (7)
  - CONFUSIONAL STATE [None]
  - NAUSEA [None]
  - SOCIAL AVOIDANT BEHAVIOUR [None]
  - DECREASED INTEREST [None]
  - DIZZINESS [None]
  - DEPRESSION [None]
  - SOMNOLENCE [None]
